FAERS Safety Report 14928270 (Version 1)
Quarter: 2018Q2

REPORT INFORMATION
  Report Type: Spontaneous
  Country: US (occurrence: US)
  Receive Date: 20180523
  Receipt Date: 20180523
  Transmission Date: 20180711
  Serious: Yes (Hospitalization, Disabling)
  Sender: FDA-Public Use
  Company Number: US-JNJFOC-20180528095

PATIENT
  Age: 40 Year
  Sex: Male
  Weight: 90.7 kg

DRUGS (1)
  1. INVOKANA [Suspect]
     Active Substance: CANAGLIFLOZIN
     Indication: TYPE 2 DIABETES MELLITUS
     Route: 048
     Dates: start: 20141110

REACTIONS (8)
  - Gangrene [Unknown]
  - Diabetic foot [Unknown]
  - Amputation [Unknown]
  - Abscess limb [Unknown]
  - Diabetic foot infection [Unknown]
  - Haematoma [Unknown]
  - Cellulitis [Unknown]
  - Osteomyelitis [Unknown]

NARRATIVE: CASE EVENT DATE: 201509
